FAERS Safety Report 15583374 (Version 1)
Quarter: 2018Q4

REPORT INFORMATION
  Report Type: Spontaneous
  Country: DE (occurrence: DE)
  Receive Date: 20181105
  Receipt Date: 20181105
  Transmission Date: 20190205
  Serious: Yes (Other)
  Sender: FDA-Public Use
  Company Number: DE-TEVA-2018-DE-968515

PATIENT
  Age: 70 Year
  Sex: Male

DRUGS (1)
  1. COPAXONE [Suspect]
     Active Substance: GLATIRAMER ACETATE
     Indication: MULTIPLE SCLEROSIS
     Dosage: UNKNOWN FORM STRENGTH; TREATMENT FOR SEVERAL YEARS ACCORDING TO GUIDELINES

REACTIONS (2)
  - Malignant melanoma [Unknown]
  - Metastases to lymph nodes [Unknown]

NARRATIVE: CASE EVENT DATE: 20180303
